FAERS Safety Report 7688915-2 (Version None)
Quarter: 2011Q3

REPORT INFORMATION
  Report Type: 
  Country: None (occurrence: None)
  Receive Date: 20110817
  Receipt Date: 20110809
  Transmission Date: 20111222
  Serious: Yes (Hospitalization)
  Sender: FDA-Public Use
  Company Number: PHHY2010AU56237

PATIENT
  Sex: Male

DRUGS (1)
  1. CLOZAPINE [Suspect]
     Dosage: 100 MG, UNK
     Dates: start: 19950123

REACTIONS (2)
  - AFFECTIVE DISORDER [None]
  - SCHIZOPHRENIA [None]
